FAERS Safety Report 9965425 (Version 1)
Quarter: 2014Q1

REPORT INFORMATION
  Report Type: Report from Study
  Country: US (occurrence: US)
  Receive Date: 20140305
  Receipt Date: 20140305
  Transmission Date: 20141002
  Serious: No
  Sender: FDA-Public Use
  Company Number: US-ABBVIE-13P-163-1126555-00

PATIENT
  Age: 43 Year
  Sex: Female
  Weight: 93.07 kg

DRUGS (7)
  1. HUMIRA [Suspect]
     Indication: CROHN^S DISEASE
     Route: 058
     Dates: start: 20130705, end: 20130705
  2. HUMIRA [Suspect]
     Route: 058
     Dates: start: 20130719
  3. LOMOTIL [Concomitant]
     Indication: CROHN^S DISEASE
     Dosage: 6 PER DAY
  4. LOMOTIL [Concomitant]
     Indication: DIARRHOEA
  5. DEXILANT [Concomitant]
     Indication: GASTROOESOPHAGEAL REFLUX DISEASE
  6. MULTIVITAMIN [Concomitant]
     Indication: VITAMIN SUPPLEMENTATION
  7. SYNTHROID [Concomitant]
     Indication: HYPOTHYROIDISM

REACTIONS (13)
  - Gastrooesophageal reflux disease [Recovering/Resolving]
  - Pain [Recovered/Resolved]
  - Arthralgia [Recovered/Resolved]
  - Musculoskeletal stiffness [Recovered/Resolved]
  - Nausea [Recovering/Resolving]
  - Vomiting [Recovered/Resolved]
  - Asthenia [Recovered/Resolved]
  - Headache [Recovered/Resolved]
  - Dehydration [Not Recovered/Not Resolved]
  - Weight decreased [Not Recovered/Not Resolved]
  - Injection site pain [Unknown]
  - Diarrhoea [Unknown]
  - Abdominal pain upper [Unknown]
